FAERS Safety Report 14503017 (Version 1)
Quarter: 2018Q1

REPORT INFORMATION
  Report Type: Spontaneous
  Country: US (occurrence: US)
  Receive Date: 20180207
  Receipt Date: 20180207
  Transmission Date: 20180509
  Serious: No
  Sender: FDA-Public Use
  Company Number: None

PATIENT
  Age: 54 Year
  Sex: Male

DRUGS (1)
  1. CAPECITABINE 500MG WEST WARD PHARMACEUTICALS [Suspect]
     Active Substance: CAPECITABINE
     Indication: RECTAL CANCER
     Route: 048
     Dates: start: 20171228

REACTIONS (3)
  - Nausea [None]
  - Vomiting [None]
  - Paraesthesia [None]

NARRATIVE: CASE EVENT DATE: 20180131
